FAERS Safety Report 19918460 (Version 1)
Quarter: 2021Q4

REPORT INFORMATION
  Report Type: Report from Study
  Country: US (occurrence: US)
  Receive Date: 20211004
  Receipt Date: 20211004
  Transmission Date: 20220303
  Serious: Yes (Hospitalization)
  Sender: FDA-Public Use
  Company Number: US-EISAI MEDICAL RESEARCH-EC-2021-100458

PATIENT
  Age: 76 Year
  Sex: Male

DRUGS (10)
  1. LENVIMA [Suspect]
     Active Substance: LENVATINIB
     Indication: Hepatocellular carcinoma
     Route: 048
     Dates: start: 20210524, end: 2021
  2. LENVIMA [Suspect]
     Active Substance: LENVATINIB
     Indication: Hepatic cancer
     Dosage: EVERY OTHER DAY FOR 5 DAYS, THEN 2 DAYS OFF
     Route: 048
     Dates: start: 20210608, end: 20210615
  3. LENVIMA [Suspect]
     Active Substance: LENVATINIB
     Route: 048
     Dates: start: 2021, end: 2021
  4. LENVIMA [Suspect]
     Active Substance: LENVATINIB
     Route: 048
     Dates: start: 2021, end: 20210718
  5. LENVIMA [Suspect]
     Active Substance: LENVATINIB
     Dosage: 4 MG IN THE MORNING AND 4 MG AT NIGHT
     Route: 048
     Dates: start: 20210817, end: 202109
  6. LENVIMA [Suspect]
     Active Substance: LENVATINIB
     Route: 048
     Dates: start: 202109, end: 202109
  7. ZESTRIL [Concomitant]
     Active Substance: LISINOPRIL
  8. LIPITOR [Concomitant]
     Active Substance: ATORVASTATIN CALCIUM
  9. ALDACTONE [Concomitant]
     Active Substance: SPIRONOLACTONE
  10. NORVASC [Concomitant]
     Active Substance: AMLODIPINE BESYLATE

REACTIONS (2)
  - Thrombosis [Recovering/Resolving]
  - Thermal burn [Recovered/Resolved]

NARRATIVE: CASE EVENT DATE: 20210615
